FAERS Safety Report 4816782-0 (Version None)
Quarter: 2005Q4

REPORT INFORMATION
  Report Type: 
  Country: None (occurrence: None)
  Receive Date: 20051031
  Receipt Date: 20051031
  Transmission Date: 20060501
  Serious: Yes (Death)
  Sender: FDA-Public Use
  Company Number: None

PATIENT
  Age: 57 Year
  Sex: Female
  Weight: 65 kg

DRUGS (2)
  1. GEMCITABINE     600MG/M2 [Suspect]
     Indication: ENDOMETRIAL CANCER
     Dosage: 996    EVERY 3 WEEKS    IV
     Route: 042
     Dates: start: 20050719, end: 20050719
  2. DOCETAXEL       35MG/M2 [Suspect]
     Indication: ENDOMETRIAL CANCER
     Dosage: 58       DAYS 1, 8, AND 15     IV
     Route: 042
     Dates: start: 20050719, end: 20050719

REACTIONS (8)
  - DISEASE PROGRESSION [None]
  - HYPOVENTILATION [None]
  - OXYGEN SATURATION DECREASED [None]
  - PALLOR [None]
  - PLEURAL EFFUSION [None]
  - REFUSAL OF TREATMENT BY PATIENT [None]
  - RESPIRATORY ARREST [None]
  - SOMNOLENCE [None]
